FAERS Safety Report 17329199 (Version 1)
Quarter: 2020Q1

REPORT INFORMATION
  Report Type: Spontaneous
  Country: US (occurrence: US)
  Receive Date: 20200110
  Receipt Date: 20200110
  Transmission Date: 20200409
  Serious: Yes (Other)
  Sender: FDA-Public Use
  Company Number: None

PATIENT
  Age: 62 Year
  Weight: 74.84 kg

DRUGS (2)
  1. SOUL 500 [CANNABIDIOL\HERBALS] [Suspect]
     Active Substance: CANNABIDIOL\HERBALS
     Indication: ANXIETY
     Dosage: ?          OTHER DOSE:2 DROPS;?
     Route: 060
     Dates: start: 20191217, end: 20191217
  2. SOUL 500 [CANNABIDIOL\HERBALS] [Suspect]
     Active Substance: CANNABIDIOL\HERBALS
     Indication: TOOTHACHE
     Dosage: ?          OTHER DOSE:2 DROPS;?
     Route: 060
     Dates: start: 20191217, end: 20191217

REACTIONS (1)
  - Diarrhoea [None]

NARRATIVE: CASE EVENT DATE: 20191217
